FAERS Safety Report 19034765 (Version 1)
Quarter: 2021Q1

REPORT INFORMATION
  Report Type: Spontaneous
  Country: CN (occurrence: CN)
  Receive Date: 20210319
  Receipt Date: 20210319
  Transmission Date: 20210420
  Serious: Yes (Other)
  Sender: FDA-Public Use
  Company Number: CN-BAXTER-2021BAX005074

PATIENT
  Age: 84 Year
  Sex: Female
  Weight: 75 kg

DRUGS (4)
  1. METRONIDAZOLE AND SODIUM CHLORIDE INJECTION [Suspect]
     Active Substance: METRONIDAZOLE\SODIUM CHLORIDE
     Indication: ANTIINFLAMMATORY THERAPY
     Dosage: DOSE RE?INTRODUCED
     Route: 041
     Dates: start: 20210219
  2. METRONIDAZOLE AND SODIUM CHLORIDE INJECTION [Suspect]
     Active Substance: METRONIDAZOLE\SODIUM CHLORIDE
     Indication: SWELLING
     Route: 041
     Dates: start: 20210219, end: 20210219
  3. 0.9% SODIUM CHLORIDE INJECTION [Suspect]
     Active Substance: SODIUM CHLORIDE
     Indication: MEDICATION DILUTION
     Dosage: XINTAILIN (CEFAZOLIN FOR INJECTION) 2.0G + 0.9% SODIUM CHLORIDE INJECTION
     Route: 041
     Dates: start: 20210219, end: 20210219
  4. 0.9% SODIUM CHLORIDE INJECTION [Suspect]
     Active Substance: SODIUM CHLORIDE
     Dosage: XINTAILIN (CEFAZOLIN FOR INJECTION) + 0.9% SODIUM CHLORIDE INJECTION, DOSE RE?INTRODUCED
     Route: 041
     Dates: start: 20210219

REACTIONS (2)
  - Hyperhidrosis [Recovering/Resolving]
  - Chest discomfort [Recovering/Resolving]

NARRATIVE: CASE EVENT DATE: 20210219
